FAERS Safety Report 7475240-8 (Version None)
Quarter: 2011Q2

REPORT INFORMATION
  Report Type: 
  Country: None (occurrence: None)
  Receive Date: 20110512
  Receipt Date: 20110503
  Transmission Date: 20111010
  Serious: Yes (Hospitalization)
  Sender: FDA-Public Use
  Company Number: US-AMGEN-USASP2011023060

PATIENT
  Age: 37 Year
  Sex: Female

DRUGS (1)
  1. ENBREL [Suspect]
     Indication: JUVENILE ARTHRITIS
     Dosage: 50 MG, QWK
     Dates: start: 20010101

REACTIONS (5)
  - JUVENILE ARTHRITIS [None]
  - BREAST CANCER [None]
  - MEMORY IMPAIRMENT [None]
  - MALAISE [None]
  - INJECTION SITE PAIN [None]
